FAERS Safety Report 24620819 (Version 2)
Quarter: 2024Q4

REPORT INFORMATION
  Report Type: Report from Study
  Country: JP (occurrence: JP)
  Receive Date: 20241114
  Receipt Date: 20241206
  Transmission Date: 20250115
  Serious: Yes (Death, Hospitalization)
  Sender: DAIICHI
  Company Number: JP-DSJP-DS-2024-107962-JP

PATIENT
  Age: 8 Decade
  Sex: Male
  Weight: 46.4 kg

DRUGS (7)
  1. ENHERTU [Suspect]
     Active Substance: FAM-TRASTUZUMAB DERUXTECAN-NXKI
     Indication: HER2 positive gastric cancer
     Dosage: 5.4 MG/KG, ONCE EVERY 3 WK
     Route: 041
     Dates: start: 20240726, end: 20240726
  2. ENHERTU [Suspect]
     Active Substance: FAM-TRASTUZUMAB DERUXTECAN-NXKI
     Dosage: 4.4 MG/KG, ONCE EVERY 3 WK
     Route: 041
     Dates: start: 20240828, end: 20240828
  3. ENHERTU [Suspect]
     Active Substance: FAM-TRASTUZUMAB DERUXTECAN-NXKI
     Dosage: 4.4 MG/KG, ONCE EVERY 3 WK
     Route: 041
     Dates: start: 20240920, end: 20240920
  4. CORTICOSTEROID NOS [Concomitant]
     Active Substance: CORTICOSTEROID NOS
     Indication: Antiemetic supportive care
     Dosage: UNK
     Route: 065
  5. 5-HT3 RECEPTOR ANTAGONIST [Concomitant]
     Indication: Antiemetic supportive care
     Dosage: UNK
     Route: 065
  6. APREPITANT [Concomitant]
     Active Substance: APREPITANT
     Indication: Antiemetic supportive care
     Dosage: UNK
     Route: 065
  7. OLANZAPINE [Concomitant]
     Active Substance: OLANZAPINE
     Indication: Antiemetic supportive care
     Dosage: UNK
     Route: 065

REACTIONS (16)
  - Pneumonia aspiration [Fatal]
  - Decreased appetite [Unknown]
  - Anaemia [Unknown]
  - Fatigue [Unknown]
  - White blood cell count decreased [Unknown]
  - Lymphocyte count decreased [Unknown]
  - Anaemia [Unknown]
  - Lymphocyte count decreased [Unknown]
  - Nausea [Unknown]
  - Decreased appetite [Unknown]
  - Malaise [Unknown]
  - Anaemia [Unknown]
  - Lymphocyte count decreased [Unknown]
  - Aspiration [Unknown]
  - Eastern Cooperative Oncology Group performance status worsened [Unknown]
  - Underdose [Unknown]

NARRATIVE: CASE EVENT DATE: 20240101
